FAERS Safety Report 11861541 (Version 1)
Quarter: 2015Q4

REPORT INFORMATION
  Report Type: Other
  Country: DE (occurrence: DE)
  Receive Date: 20151222
  Receipt Date: 20151222
  Transmission Date: 20160305
  Serious: Yes (Other)
  Sender: FDA-Public Use
  Company Number: DE-MYLANLABS-2015M1044695

PATIENT

DRUGS (7)
  1. RAMIPRIL. [Concomitant]
     Active Substance: RAMIPRIL
     Dosage: 2.5 MG, QD (DAILY DOSE: 2.5 MG MILLGRAM(S) EVERY DAYS)
     Route: 048
  2. CLARITHROMYCIN. [Suspect]
     Active Substance: CLARITHROMYCIN
     Indication: HELICOBACTER INFECTION
     Dosage: 250 MG, BID (DAILY DOSE: 500 MG MILLGRAM(S) EVERY DAYS)
     Route: 048
     Dates: start: 20151127, end: 20151202
  3. METHYLPREDNISOLON                  /00049601/ [Concomitant]
     Active Substance: METHYLPREDNISOLONE
     Indication: RENAL TRANSPLANT
     Dosage: 8 MG, UNK
     Route: 048
  4. PANTOPRAZOL [Concomitant]
     Active Substance: PANTOPRAZOLE SODIUM
     Indication: OESOPHAGITIS
     Dosage: 40 MG, UNK
     Route: 048
  5. AMOXICILLIN SODIUM W/CLAVULANIC ACID [Interacting]
     Active Substance: AMOXICILLIN\CLAVULANATE POTASSIUM
     Indication: HELICOBACTER INFECTION
     Dosage: 1 DF, BID (DAILY DOSE: 2 DF DOSAGE FORM EVERY DAYS)
     Route: 048
     Dates: start: 20151125, end: 20151202
  6. FUROSEMID                          /00032601/ [Concomitant]
     Active Substance: FUROSEMIDE
     Indication: ASCITES
     Dosage: 40 MG, UNK
     Route: 048
  7. ADVAGRAF [Interacting]
     Active Substance: TACROLIMUS
     Indication: RENAL TRANSPLANT
     Dosage: 1 MG, Q3D (DAILY DOSE: 1 MG MILLGRAM(S) EVERY 3 DAYS)
     Route: 048

REACTIONS (3)
  - Vomiting [Not Recovered/Not Resolved]
  - Drug level increased [Not Recovered/Not Resolved]
  - Nausea [Not Recovered/Not Resolved]

NARRATIVE: CASE EVENT DATE: 20151130
